FAERS Safety Report 5779967-5 (Version None)
Quarter: 2008Q2

REPORT INFORMATION
  Report Type: 
  Country: None (occurrence: None)
  Receive Date: 20080616
  Receipt Date: 20080312
  Transmission Date: 20081010
  Serious: Yes (Other)
  Sender: FDA-Public Use
  Company Number: 08-145

PATIENT
  Age: 87 Year
  Sex: Female
  Weight: 61.2356 kg

DRUGS (12)
  1. ALEVE [Suspect]
     Indication: BACK PAIN
     Dosage: 220 MG,440 MG, DAILY, ORAL
     Route: 048
     Dates: start: 20080228, end: 20080301
  2. ALEVE [Suspect]
     Indication: BACK PAIN
     Dosage: 220 MG,440 MG, DAILY, ORAL
     Route: 048
     Dates: start: 20080302, end: 20080302
  3. ATACAND [Concomitant]
  4. BISOPROLOL FUMARATE [Concomitant]
  5. LIPITOR [Concomitant]
  6. TORSEMIDE [Concomitant]
  7. K-DUR [Concomitant]
  8. ASPIRIN [Concomitant]
  9. ASPIRIN [Concomitant]
  10. CENTRUM SILVER [Concomitant]
  11. PROTONIX [Concomitant]
  12. UNISOM [Concomitant]

REACTIONS (1)
  - BLOOD PRESSURE INCREASED [None]
